FAERS Safety Report 9826259 (Version 1)
Quarter: 2013Q4

REPORT INFORMATION
  Report Type: Spontaneous
  Country: US (occurrence: None)
  Receive Date: 20131223
  Receipt Date: 20131223
  Transmission Date: 20140711
  Serious: No
  Sender: FDA-Public Use
  Company Number: 219817LEO

PATIENT
  Age: 57 Year
  Sex: Female

DRUGS (11)
  1. PICATO GEL [Suspect]
     Indication: DRY SKIN
     Route: 061
     Dates: start: 20121126, end: 20121127
  2. PROPANOLOL ER (PROPANOLOL) [Concomitant]
  3. PROPANOL ER (PROPANOLOL) [Concomitant]
  4. FLONASE NASAL SPRAY (FLUTICASONE PROPIONATE) [Concomitant]
  5. B12 NASAL SPRAY (CYCANOCOBALMIN) [Concomitant]
  6. VITAMIN D3 (AND A MULTI VITAMIN (MULTIVITAMIN/00831701) [Concomitant]
  7. NAPRELAN (NAPROXEN SODIUM) [Concomitant]
  8. LYRICA (PREGAMBLIN) [Concomitant]
  9. FISH OIL (FISH OIL) [Concomitant]
  10. ULTRAM (TRAMADOL HYDROCHLORIDE) [Concomitant]
  11. VIIBRYD (ANT DEPRESSANT) [Concomitant]

REACTIONS (4)
  - Blister [None]
  - Application site swelling [None]
  - Application site erythema [None]
  - Off label use [None]
